FAERS Safety Report 24247298 (Version 2)
Quarter: 2024Q4

REPORT INFORMATION
  Report Type: Spontaneous
  Country: IE (occurrence: IE)
  Receive Date: 20240826
  Receipt Date: 20241014
  Transmission Date: 20250115
  Serious: Yes (Other)
  Sender: ROCHE
  Company Number: None

PATIENT
  Sex: Male

DRUGS (7)
  1. RITUXIMAB [Suspect]
     Active Substance: RITUXIMAB
     Indication: Autoimmune nodopathy
     Dosage: 1 G
     Route: 065
  2. RITUXIMAB [Suspect]
     Active Substance: RITUXIMAB
     Dosage: UNK
     Route: 065
     Dates: start: 202402
  3. RITUXIMAB [Suspect]
     Active Substance: RITUXIMAB
     Dosage: 1 G
     Route: 065
     Dates: start: 202204
  4. RITUXIMAB [Suspect]
     Active Substance: RITUXIMAB
     Dosage: 0.5 G
     Route: 065
     Dates: start: 202112
  5. RITUXIMAB [Suspect]
     Active Substance: RITUXIMAB
     Dosage: UNK
     Route: 065
     Dates: start: 202408
  6. RITUXIMAB [Suspect]
     Active Substance: RITUXIMAB
     Dosage: 0.5 G
     Route: 065
     Dates: start: 202201
  7. RITUXIMAB [Suspect]
     Active Substance: RITUXIMAB
     Dosage: UNK
     Route: 065
     Dates: start: 202208

REACTIONS (11)
  - Weight decreased [Recovering/Resolving]
  - Balance disorder [Recovering/Resolving]
  - Gastrointestinal disorder [Recovering/Resolving]
  - Dysphagia [Recovering/Resolving]
  - Infection [Recovered/Resolved]
  - Tremor [Recovering/Resolving]
  - Motion sickness [Recovering/Resolving]
  - Hyperthyroidism [Recovered/Resolved]
  - Off label use [Unknown]
  - Therapeutic response shortened [Recovering/Resolving]
  - COVID-19 [Unknown]

NARRATIVE: CASE EVENT DATE: 20231201
